FAERS Safety Report 5056611-6 (Version None)
Quarter: 2006Q2

REPORT INFORMATION
  Report Type: 
  Country: None (occurrence: None)
  Receive Date: 20060616
  Receipt Date: 20060421
  Transmission Date: 20061013
  Serious: No
  Sender: FDA-Public Use
  Company Number: 2006US000712

PATIENT
  Age: 64 Year
  Sex: Male

DRUGS (11)
  1. VESICARE [Suspect]
     Indication: HYPERTONIC BLADDER
     Dosage: 5 MG, BID, ORAL
     Route: 048
     Dates: start: 20060301
  2. METFORMIN (METFORMIN) [Concomitant]
  3. AVANDIA [Concomitant]
  4. GLIPIZIDE [Concomitant]
  5. CLONAZEPAM [Concomitant]
  6. TERAZOSIN (TERAZOSIN) [Concomitant]
  7. CYCLOBENZAPRINE HCL [Concomitant]
  8. ZYRTEC [Concomitant]
  9. BENEZEPRIL [Concomitant]
  10. CIRCULATION COMPLEX [Concomitant]
  11. CALCIUM MAGNESIUM ZINC (MAGNESIUM, CALCIUM, ZINC) [Concomitant]

REACTIONS (1)
  - DRUG INEFFECTIVE [None]
